FAERS Safety Report 8359741-6 (Version None)
Quarter: 2012Q2

REPORT INFORMATION
  Report Type: 
  Country: None (occurrence: None)
  Receive Date: 20120515
  Receipt Date: 20120511
  Transmission Date: 20120825
  Serious: Yes (Other)
  Sender: FDA-Public Use
  Company Number: US-BAYER-2012-047053

PATIENT
  Age: 35 Year
  Sex: Female
  Weight: 80 kg

DRUGS (4)
  1. YASMIN [Suspect]
     Indication: MENORRHAGIA
  2. LOCOID [Concomitant]
     Route: 061
  3. DETROL [Concomitant]
  4. HYDROCORTISONE BUTYRATE [Concomitant]

REACTIONS (2)
  - PULMONARY EMBOLISM [None]
  - DEEP VEIN THROMBOSIS [None]
